FAERS Safety Report 10179555 (Version 2)
Quarter: 2014Q2

REPORT INFORMATION
  Report Type: Spontaneous
  Country: US (occurrence: US)
  Receive Date: 20140519
  Receipt Date: 20140527
  Transmission Date: 20141212
  Serious: Yes (Hospitalization, Other)
  Sender: FDA-Public Use
  Company Number: US-BAXTER-2014BAX024420

PATIENT
  Age: 43 Year
  Sex: Male

DRUGS (1)
  1. DIANEAL LOW CALCIUM [Suspect]
     Indication: PERITONEAL DIALYSIS
     Route: 033
     Dates: start: 201404, end: 20140514

REACTIONS (7)
  - Infection [Unknown]
  - Convulsion [Recovering/Resolving]
  - Blood glucose increased [Recovering/Resolving]
  - Device related infection [Recovering/Resolving]
  - Abdominal infection [Recovering/Resolving]
  - Vomiting [Unknown]
  - Hypertension [Recovering/Resolving]
